FAERS Safety Report 5734727-6 (Version None)
Quarter: 2008Q2

REPORT INFORMATION
  Report Type: 
  Country: None (occurrence: None)
  Receive Date: 20080508
  Receipt Date: 20080508
  Transmission Date: 20081010
  Serious: No
  Sender: FDA-Public Use
  Company Number: None

PATIENT
  Age: 28 Year
  Sex: Female
  Weight: 49.8957 kg

DRUGS (1)
  1. CREST PRO-HEALTH MOUTH RINSE [Suspect]
     Dates: start: 20060715, end: 20060821

REACTIONS (1)
  - AGEUSIA [None]
